FAERS Safety Report 4375304-1 (Version None)
Quarter: 2004Q2

REPORT INFORMATION
  Report Type: 
  Country: None (occurrence: None)
  Receive Date: 20040608
  Receipt Date: 20040526
  Transmission Date: 20050107
  Serious: Yes (Hospitalization)
  Sender: FDA-Public Use
  Company Number: PANC00304001505

PATIENT
  Age: 62 Year
  Sex: Female
  Weight: 55 kg

DRUGS (8)
  1. CREON [Suspect]
     Indication: PANCREATIC INSUFFICIENCY
     Dosage: 3 G DAILY PO, 3 G DAILY PO
     Route: 048
     Dates: start: 19970213, end: 19980220
  2. CREON [Suspect]
     Indication: PANCREATIC INSUFFICIENCY
     Dosage: 3 G DAILY PO, 3 G DAILY PO
     Route: 048
     Dates: start: 19980410, end: 19980410
  3. FERO-GRADUMET [Concomitant]
  4. FAMOTIDINE [Concomitant]
  5. SLOW FE (FERROUS SULFATE) [Concomitant]
  6. MOHRUS (KETOPROFEN) [Concomitant]
  7. FLUCAM (AMPIROXICAM) [Concomitant]
  8. RHYTHMY (RILMAZAFONE) [Concomitant]

REACTIONS (5)
  - DIARRHOEA [None]
  - HUMERUS FRACTURE [None]
  - INFLUENZA [None]
  - MALNUTRITION [None]
  - VOMITING [None]
